FAERS Safety Report 7384312-8 (Version None)
Quarter: 2011Q1

REPORT INFORMATION
  Report Type: 
  Country: None (occurrence: None)
  Receive Date: 20110330
  Receipt Date: 20110322
  Transmission Date: 20110831
  Serious: Yes (Death, Hospitalization)
  Sender: FDA-Public Use
  Company Number: JP-GENZYME-THYM-1002120

PATIENT
  Sex: Male
  Weight: 69 kg

DRUGS (17)
  1. CEFOZOPRAN HYDROCHLORIDE [Concomitant]
     Indication: INFECTION PROPHYLAXIS
     Dosage: 1 G, BID
     Dates: start: 20100403, end: 20100405
  2. RED BLOOD CELLS, CONCENTRATED [Concomitant]
     Indication: PRODUCT USED FOR UNKNOWN INDICATION
     Dosage: 2 U, UNK
     Dates: start: 20091014, end: 20100421
  3. METHYLPREDNISOLONE SODIUM SUCCINATE [Concomitant]
     Dosage: 250 MG, QD
     Dates: start: 20100410, end: 20100410
  4. LEVOFLOXACIN [Concomitant]
     Indication: INFECTION PROPHYLAXIS
     Dosage: 500 MG, QD
     Dates: start: 20100312, end: 20100408
  5. METENOLONE ACETATE [Concomitant]
     Indication: APLASTIC ANAEMIA
     Dosage: 5 MG, TID
     Dates: start: 20090311, end: 20100412
  6. MICAFUNGIN [Concomitant]
     Indication: INFECTION PROPHYLAXIS
     Dosage: 100 MG, QD
     Dates: start: 20100412, end: 20100413
  7. MEROPENEM [Concomitant]
     Dosage: 0.5 G, QD
     Dates: start: 20100414, end: 20100414
  8. METHYLPREDNISOLONE SODIUM SUCCINATE [Concomitant]
     Dosage: 375 MG, QD
     Dates: start: 20100411, end: 20100411
  9. CEFOZOPRAN HYDROCHLORIDE [Concomitant]
     Dosage: 1 G, BID
     Dates: start: 20100406, end: 20100409
  10. PLATELETS, CONCENTRATED [Concomitant]
     Indication: PRODUCT USED FOR UNKNOWN INDICATION
     Dosage: 10 U, UNK
     Dates: start: 20090330, end: 20100421
  11. MEROPENEM [Concomitant]
     Indication: INFECTION PROPHYLAXIS
     Dosage: 0.5 G, BID
     Dates: start: 20100410, end: 20100410
  12. THYMOGLOBULIN [Suspect]
     Indication: APLASTIC ANAEMIA
     Dosage: 3.75 MG/KG, QD
     Route: 042
     Dates: start: 20100401, end: 20100405
  13. METHYLPREDNISOLONE SODIUM SUCCINATE [Concomitant]
     Dosage: 125 MG, QD
     Dates: start: 20100406, end: 20100409
  14. MEROPENEM [Concomitant]
     Dosage: 0.5 G, BID
     Dates: start: 20100411, end: 20100413
  15. METHYLPREDNISOLONE SODIUM SUCCINATE [Concomitant]
     Indication: PREMEDICATION
     Dosage: 500 MG, QD
     Dates: start: 20100401, end: 20100405
  16. CYCLOSPORINE [Concomitant]
     Indication: APLASTIC ANAEMIA
     Dosage: 130 MG, BID
     Dates: start: 20090414, end: 20100412
  17. GANCICLOVIR [Concomitant]
     Indication: INFECTION PROPHYLAXIS
     Dosage: 180 MG, QD
     Dates: start: 20100412, end: 20100413

REACTIONS (2)
  - LYMPHOPROLIFERATIVE DISORDER [None]
  - EPSTEIN-BARR VIRUS INFECTION [None]
